FAERS Safety Report 20626005 (Version 1)
Quarter: 2022Q1

REPORT INFORMATION
  Report Type: Spontaneous
  Country: US (occurrence: US)
  Receive Date: 20220323
  Receipt Date: 20220323
  Transmission Date: 20220424
  Serious: Yes (Disabling)
  Sender: FDA-Public Use
  Company Number: US-TEVA-2022-US-2020513

PATIENT
  Sex: Female

DRUGS (1)
  1. DOCETAXEL [Suspect]
     Active Substance: DOCETAXEL
     Indication: Breast cancer female
     Dosage: FREQUENCY: ONCE EVERY THREE WEEKS AND RECEIVED 6 ROUNDS OF INJECTION
     Route: 042

REACTIONS (2)
  - Dacryostenosis acquired [Not Recovered/Not Resolved]
  - Lacrimation increased [Not Recovered/Not Resolved]
